FAERS Safety Report 13377925 (Version 4)
Quarter: 2017Q2

REPORT INFORMATION
  Report Type: Spontaneous
  Country: FR (occurrence: FR)
  Receive Date: 20170328
  Receipt Date: 20170616
  Transmission Date: 20170830
  Serious: Yes (Death, Life-Threatening, Hospitalization, Other)
  Sender: FDA-Public Use
  Company Number: FR-BRISTOL-MYERS SQUIBB COMPANY-BMS-2017-025317

PATIENT
  Age: 66 Year
  Sex: Female
  Weight: 51 kg

DRUGS (7)
  1. ELIQUIS [Concomitant]
     Active Substance: APIXABAN
     Indication: LEFT VENTRICULAR FAILURE
     Dosage: UNK
     Route: 048
     Dates: start: 2015
  2. OPDIVO [Suspect]
     Active Substance: NIVOLUMAB
     Indication: NON-SMALL CELL LUNG CANCER
     Dosage: 183 MG, Q2WK
     Route: 065
     Dates: start: 20170209, end: 20170307
  3. HEMIGOXINE [Concomitant]
     Active Substance: DIGOXIN
     Indication: LEFT VENTRICULAR FAILURE
     Dosage: UNK
     Route: 065
     Dates: start: 2015
  4. SPIRONOLACTONE. [Concomitant]
     Active Substance: SPIRONOLACTONE
     Indication: LEFT VENTRICULAR FAILURE
     Dosage: UNK
     Route: 065
     Dates: start: 2015
  5. BISOPROLOL [Concomitant]
     Active Substance: BISOPROLOL
     Indication: LEFT VENTRICULAR FAILURE
     Dosage: 5 MG, UNK
     Route: 065
     Dates: start: 2015
  6. ESOMEPRAZOL                        /01479301/ [Concomitant]
     Active Substance: ESOMEPRAZOLE
     Indication: GASTROOESOPHAGEAL REFLUX DISEASE
     Dosage: UNK
     Route: 065
     Dates: start: 2015
  7. LASILIX                            /00032601/ [Concomitant]
     Active Substance: FUROSEMIDE
     Indication: LEFT VENTRICULAR FAILURE
     Dosage: UNK
     Route: 065
     Dates: start: 2015

REACTIONS (5)
  - Transfusion [Unknown]
  - Sudden death [Fatal]
  - Autoimmune haemolytic anaemia [Unknown]
  - Asthenia [Not Recovered/Not Resolved]
  - Jaundice [Not Recovered/Not Resolved]

NARRATIVE: CASE EVENT DATE: 20170309
